FAERS Safety Report 9366079 (Version 1)
Quarter: 2013Q2

REPORT INFORMATION
  Report Type: Spontaneous
  Country: US (occurrence: US)
  Receive Date: 20130625
  Receipt Date: 20130625
  Transmission Date: 20140414
  Serious: Yes (Other)
  Sender: FDA-Public Use
  Company Number: US-VIROPHARMA INCORPORATED-20130611CINRY4405

PATIENT
  Age: 49 Year
  Sex: Female
  Weight: 74.68 kg

DRUGS (11)
  1. CINRYZE (C1 ESTERASE INHIBITOR (HUMAN)) [Suspect]
     Indication: HEREDITARY ANGIOEDEMA
     Dates: start: 200902, end: 201209
  2. CINRYZE (C1 ESTERASE INHIBITOR (HUMAN)) [Suspect]
     Indication: PROPHYLAXIS
     Dates: start: 201209, end: 201305
  3. CINRYZE (C1 ESTERASE INHIBITOR (HUMAN)) [Suspect]
     Dates: start: 201305
  4. XANAX [Concomitant]
     Indication: ANXIETY
     Route: 065
  5. TIZANIDINE [Concomitant]
     Indication: PRODUCT USED FOR UNKNOWN INDICATION
     Route: 065
  6. PROZAC [Concomitant]
     Indication: DEPRESSION
     Route: 048
  7. MULTIVITAMIN [Concomitant]
     Indication: SUPPLEMENTATION THERAPY
     Dosage: UNKNOWN
     Route: 065
  8. LYRICA [Concomitant]
     Indication: PRODUCT USED FOR UNKNOWN INDICATION
     Dosage: UNKNOWN
     Route: 065
  9. HYDROCODONE W/IBUPROFEN [Concomitant]
     Indication: PAIN
     Dosage: UNKNOWN
     Route: 065
  10. FISH OIL PLUS VITAMIN D [Concomitant]
     Indication: PRODUCT USED FOR UNKNOWN INDICATION
     Dosage: UNKNOWN
     Route: 065
  11. CALCIUM PLUS VITAMIN D [Concomitant]
     Indication: SUPPLEMENTATION THERAPY
     Dosage: UNKNOWN
     Route: 065

REACTIONS (2)
  - Hodgkin^s disease nodular sclerosis stage II [Not Recovered/Not Resolved]
  - Therapy change [Recovered/Resolved]
